FAERS Safety Report 4501889-8 (Version None)
Quarter: 2004Q4

REPORT INFORMATION
  Report Type: 
  Country: None (occurrence: None)
  Receive Date: 20041115
  Receipt Date: 20041115
  Transmission Date: 20050328
  Serious: Yes (Hospitalization)
  Sender: FDA-Public Use
  Company Number: None

PATIENT
  Age: 85 Year
  Sex: Male
  Weight: 77.1 kg

DRUGS (7)
  1. DIGOXIN [Suspect]
  2. AMIODARONE [Concomitant]
  3. CALCIUM CARBONATE (CA 260 MG) [Concomitant]
  4. FUROSEMIDE [Concomitant]
  5. BUPROPION (WELLBUTRIN SR) [Concomitant]
  6. BICALUTAMIDE [Concomitant]
  7. GABAPENTIN [Concomitant]

REACTIONS (1)
  - THERAPEUTIC AGENT TOXICITY [None]
